FAERS Safety Report 18902782 (Version 2)
Quarter: 2021Q2

REPORT INFORMATION
  Report Type: Spontaneous
  Country: DE (occurrence: DE)
  Receive Date: 20210217
  Receipt Date: 20210624
  Transmission Date: 20210717
  Serious: Yes (Other)
  Sender: FDA-Public Use
  Company Number: DE-ACCORD-215177

PATIENT
  Age: 31 Year
  Sex: Male

DRUGS (1)
  1. PROPECIA [Suspect]
     Active Substance: FINASTERIDE
     Indication: ANDROGENETIC ALOPECIA
     Dosage: STRENGTH: 1 MG
     Dates: start: 2013

REACTIONS (1)
  - Post 5-alpha-reductase inhibitor syndrome [Not Recovered/Not Resolved]
